FAERS Safety Report 10387514 (Version 1)
Quarter: 2014Q3

REPORT INFORMATION
  Report Type: Spontaneous
  Country: US (occurrence: US)
  Receive Date: 20140815
  Receipt Date: 20140815
  Transmission Date: 20150326
  Serious: No
  Sender: FDA-Public Use
  Company Number: US-TARO-2013P1020898

PATIENT
  Age: 58 Year
  Sex: Female

DRUGS (2)
  1. LAMISIL [Suspect]
     Active Substance: TERBINAFINE HYDROCHLORIDE
     Route: 061
     Dates: end: 201310
  2. LAMISIL SPRAY [Concomitant]

REACTIONS (2)
  - Application site paraesthesia [Unknown]
  - Off label use [Unknown]
